FAERS Safety Report 25526337 (Version 1)
Quarter: 2025Q3

REPORT INFORMATION
  Report Type: Report from Study
  Country: US (occurrence: US)
  Receive Date: 20250707
  Receipt Date: 20250707
  Transmission Date: 20251021
  Serious: No
  Sender: SANDOZ
  Company Number: US-SANDOZ-SDZ2025US045503

PATIENT
  Sex: Male

DRUGS (2)
  1. OMNITROPE [Suspect]
     Active Substance: SOMATROPIN
     Indication: Short stature
     Dosage: 0.24 ML, QD (5 MG/ML)
     Route: 058
     Dates: start: 20250626, end: 20250701
  2. OMNITROPE [Suspect]
     Active Substance: SOMATROPIN
     Indication: Short stature
     Dosage: 0.24 ML, QD (5 MG/ML)
     Route: 058
     Dates: start: 20250626, end: 20250701

REACTIONS (3)
  - Device use confusion [Unknown]
  - Device difficult to use [Unknown]
  - Needle issue [Unknown]
